FAERS Safety Report 5511647-3 (Version None)
Quarter: 2007Q4

REPORT INFORMATION
  Report Type: 
  Country: None (occurrence: None)
  Receive Date: 20071109
  Receipt Date: 20071026
  Transmission Date: 20080405
  Serious: Yes (Other)
  Sender: FDA-Public Use
  Company Number: GB-RANBAXY-2007RR-07991

PATIENT

DRUGS (1)
  1. AMOXICILLIN [Suspect]
     Indication: LOWER RESPIRATORY TRACT INFECTION
     Dosage: 5 ML, UNK
     Route: 048
     Dates: start: 20070511, end: 20070516

REACTIONS (4)
  - AGGRESSION [None]
  - EMOTIONAL DISORDER [None]
  - FATIGUE [None]
  - SCREAMING [None]
